FAERS Safety Report 10560771 (Version 1)
Quarter: 2014Q4

REPORT INFORMATION
  Report Type: Spontaneous
  Country: FR (occurrence: FR)
  Receive Date: 20141103
  Receipt Date: 20141103
  Transmission Date: 20150529
  Serious: Yes (Other)
  Sender: FDA-Public Use
  Company Number: PHHY2014FR142665

PATIENT
  Age: 90 Year
  Sex: Male

DRUGS (3)
  1. EXELON [Suspect]
     Active Substance: RIVASTIGMINE TARTRATE
     Indication: DEMENTIA ALZHEIMER^S TYPE
     Dosage: 6 MG, BID
     Route: 048
     Dates: end: 201410
  2. EXELON [Suspect]
     Active Substance: RIVASTIGMINE TARTRATE
     Dosage: 6 MG, BID
     Route: 065
  3. PREVISCAN [Concomitant]
     Active Substance: FLUINDIONE
     Indication: PRODUCT USED FOR UNKNOWN INDICATION
     Route: 065

REACTIONS (7)
  - Hemiplegia [Recovered/Resolved]
  - Aphasia [Recovered/Resolved]
  - Ischaemic stroke [Unknown]
  - Hallucinations, mixed [Recovered/Resolved]
  - Epilepsy [Recovered/Resolved]
  - Altered state of consciousness [Recovered/Resolved]
  - Drug withdrawal syndrome [Recovered/Resolved]

NARRATIVE: CASE EVENT DATE: 201410
